FAERS Safety Report 10995615 (Version 1)
Quarter: 2015Q2

REPORT INFORMATION
  Report Type: Not Available
  Country: IT (occurrence: IT)
  Receive Date: 20150407
  Receipt Date: 20150407
  Transmission Date: 20150821
  Serious: Yes (Hospitalization)
  Sender: FDA-Public Use
  Company Number: IT-MUNDIPHARMA DS AND PHARMACOVIGILANCE-GBR-2015-0026698

PATIENT
  Age: 75 Year
  Sex: Female

DRUGS (7)
  1. ZOMETA [Suspect]
     Active Substance: ZOLEDRONIC ACID
     Indication: METASTASIS
     Dosage: 4 MG, DAILY
     Route: 042
     Dates: start: 20140620, end: 20140710
  2. FASLODEX [Suspect]
     Active Substance: FULVESTRANT
     Indication: METASTASIS
     Dosage: 1 UNIT, UNK
     Route: 042
     Dates: start: 20140620, end: 20140710
  3. CITALOPRAM [Concomitant]
     Active Substance: CITALOPRAM HYDROBROMIDE
     Route: 065
  4. MATRIFEN [Suspect]
     Active Substance: FENTANYL
     Indication: PAIN
     Dosage: 12 MCG, HOURLY
     Route: 062
     Dates: start: 20130601, end: 20140710
  5. SOLDESAM [Concomitant]
     Active Substance: DEXAMETHASONE
     Dosage: 4 MG/ML
     Route: 042
  6. TARGIN COMPRESSA A RILASCIO PROLUNGATO CONTIENE 40MG/20MG [Suspect]
     Active Substance: NALOXONE HYDROCHLORIDE\OXYCODONE HYDROCHLORIDE
     Indication: PAIN
     Dosage: 40 MG, DAILY
     Route: 048
     Dates: start: 20130601, end: 20140710
  7. MACROGOL [Concomitant]
     Active Substance: POLYETHYLENE GLYCOLS
     Dosage: 13.7 G, UNK
     Route: 048

REACTIONS (2)
  - Hyponatraemia [Recovering/Resolving]
  - Presyncope [Recovering/Resolving]

NARRATIVE: CASE EVENT DATE: 20140710
